FAERS Safety Report 7949583-5 (Version None)
Quarter: 2011Q4

REPORT INFORMATION
  Report Type: 
  Country: None (occurrence: None)
  Receive Date: 20111130
  Receipt Date: 20111122
  Transmission Date: 20120403
  Serious: Yes (Life-Threatening)
  Sender: FDA-Public Use
  Company Number: BE-CELGENEUS-013-21880-11070724

PATIENT
  Sex: Male
  Weight: 87 kg

DRUGS (3)
  1. REVLIMID [Suspect]
     Route: 048
     Dates: start: 20110428, end: 20110518
  2. CYTARABINE [Suspect]
     Route: 041
     Dates: start: 20110428, end: 20110504
  3. DAUNORUBICIN HCL [Suspect]
     Route: 041
     Dates: start: 20110428, end: 20110430

REACTIONS (1)
  - ACUTE RESPIRATORY DISTRESS SYNDROME [None]
